FAERS Safety Report 15577640 (Version 6)
Quarter: 2019Q1

REPORT INFORMATION
  Report Type: Spontaneous
  Country: IT (occurrence: IT)
  Receive Date: 20181102
  Receipt Date: 20190124
  Transmission Date: 20190417
  Serious: Yes (Hospitalization, Other)
  Sender: FDA-Public Use
  Company Number: IT-BIOGEN-2018BI00653815

PATIENT
  Age: 12 Month
  Sex: Male
  Weight: 3.35 kg

DRUGS (8)
  1. TECNOFER [Concomitant]
     Indication: PRODUCT USED FOR UNKNOWN INDICATION
     Dosage: 10 DROPS AT 8
     Route: 065
  2. DICOFLOR [Concomitant]
     Active Substance: LACTOBACILLUS RHAMNOSUS
     Indication: PRODUCT USED FOR UNKNOWN INDICATION
     Dosage: 5 DROPS AT 20
     Route: 065
  3. PEG [Concomitant]
     Active Substance: POLYETHYLENE GLYCOLS
     Indication: PRODUCT USED FOR UNKNOWN INDICATION
     Dosage: 700/850 ML/DAILY
     Route: 065
  4. MOVICOL [Concomitant]
     Active Substance: POLYETHYLENE GLYCOL 3350\POTASSIUM CHLORIDE\SODIUM BICARBONATE\SODIUM CHLORIDE
     Indication: PRODUCT USED FOR UNKNOWN INDICATION
     Dosage: 1 SACHET AT 8
     Route: 065
  5. PEPTAMEN [Concomitant]
     Indication: PRODUCT USED FOR UNKNOWN INDICATION
     Dosage: 6-10-14-18-20 AEROSOL WITH PHYSIOLOGICAL SOLUTION 3 ML
     Route: 065
  6. SPINRAZA [Suspect]
     Active Substance: NUSINERSEN
     Indication: SPINAL MUSCULAR ATROPHY
     Dosage: MAINTENANCE PHASE
     Route: 037
     Dates: start: 20171026
  7. BE-TOTAL [Concomitant]
     Indication: PRODUCT USED FOR UNKNOWN INDICATION
     Dosage: 5ML AT 20
     Route: 065
  8. BRONCOVALEAS [Concomitant]
     Active Substance: ALBUTEROL
     Indication: PRODUCT USED FOR UNKNOWN INDICATION
     Dosage: 5 DROPS AT 8-16-20
     Route: 065

REACTIONS (6)
  - Acute respiratory failure [Unknown]
  - Pneumonia [Unknown]
  - Arachnoid cyst [Unknown]
  - Conjunctival hyperaemia [Unknown]
  - Cerebral ventricle dilatation [Not Recovered/Not Resolved]
  - Cerebral atrophy [Not Recovered/Not Resolved]

NARRATIVE: CASE EVENT DATE: 20171126
